FAERS Safety Report 8941839 (Version 3)
Quarter: 2013Q3

REPORT INFORMATION
  Report Type: Report from Study
  Country: GB (occurrence: GB)
  Receive Date: 20121203
  Receipt Date: 20130730
  Transmission Date: 20140515
  Serious: Yes (Hospitalization)
  Sender: FDA-Public Use
  Company Number: GB-PFIZER INC-2012297074

PATIENT
  Age: 61 Year
  Sex: Female
  Weight: 64.7 kg

DRUGS (6)
  1. EPIRUBICIN HCL [Suspect]
     Indication: BREAST CANCER
     Dosage: 170 MG, EVERY 3 WEEKS
     Route: 042
     Dates: start: 20121016, end: 20121120
  2. EPIRUBICIN HCL [Suspect]
     Dosage: 170 MG, EVERY 3 WEEKS
     Route: 042
     Dates: start: 20121206
  3. CYCLOPHOSPHAMIDE [Suspect]
     Indication: BREAST CANCER
     Dosage: 850 MG, EVERY 3 WEEKS
     Route: 042
     Dates: start: 20121016, end: 20121120
  4. CYCLOPHOSPHAMIDE [Suspect]
     Dosage: 850 MG, EVERY 3 WEEKS
     Route: 042
     Dates: start: 20121206
  5. FLUOROURACIL [Suspect]
     Indication: BREAST CANCER
     Dosage: 850 MG, EVERY 3 WEEKS
     Route: 042
     Dates: start: 20121016, end: 20121120
  6. FLUOROURACIL [Suspect]
     Dosage: 850 MG, EVERY 3 WEEKS
     Route: 042
     Dates: start: 20121206

REACTIONS (1)
  - Pneumonia [Recovered/Resolved]
